FAERS Safety Report 10962098 (Version 1)
Quarter: 2015Q1

REPORT INFORMATION
  Report Type: Spontaneous
  Country: US (occurrence: None)
  Receive Date: 20150226
  Receipt Date: 20150226
  Transmission Date: 20150721
  Serious: Yes (Other)
  Sender: FDA-Public Use
  Company Number: TPA2012A03397

PATIENT
  Age: 66 Year
  Sex: Female

DRUGS (3)
  1. ACTOS [Suspect]
     Active Substance: PIOGLITAZONE HYDROCHLORIDE
     Indication: TYPE 2 DIABETES MELLITUS
     Dates: start: 200407, end: 201008
  2. MICRONASE (GLIBENCLAMIDE) [Concomitant]
  3. DIABETA [Concomitant]
     Active Substance: GLYBURIDE

REACTIONS (2)
  - Bladder cancer [None]
  - Metastatic carcinoma of the bladder [None]

NARRATIVE: CASE EVENT DATE: 201003
